FAERS Safety Report 24824223 (Version 1)
Quarter: 2025Q1

REPORT INFORMATION
  Report Type: Spontaneous
  Country: JP (occurrence: JP)
  Receive Date: 20250109
  Receipt Date: 20250109
  Transmission Date: 20250409
  Serious: Yes (Other)
  Sender: VIIV
  Company Number: JP-VIIV HEALTHCARE-JP2025JPN001234

PATIENT

DRUGS (7)
  1. TIVICAY [Suspect]
     Active Substance: DOLUTEGRAVIR SODIUM
     Indication: HIV infection
  2. TRUVADA [Concomitant]
     Active Substance: EMTRICITABINE\TENOFOVIR DISOPROXIL FUMARATE
     Indication: HIV infection
  3. PREDNISOLONE [Concomitant]
     Active Substance: PREDNISOLONE
  4. ISONIAZID [Concomitant]
     Active Substance: ISONIAZID
     Indication: Tuberculosis
  5. RIFABUTIN [Concomitant]
     Active Substance: RIFABUTIN
     Indication: Tuberculosis
  6. ETHAMBUTOL [Concomitant]
     Active Substance: ETHAMBUTOL HYDROCHLORIDE
     Indication: Tuberculosis
  7. PYRAZINAMIDE [Concomitant]
     Active Substance: PYRAZINAMIDE
     Indication: Tuberculosis

REACTIONS (5)
  - Pneumocystis jirovecii pneumonia [Unknown]
  - Immune reconstitution inflammatory syndrome [Unknown]
  - Drug-induced liver injury [Unknown]
  - Cerebral toxoplasmosis [Unknown]
  - Pyrexia [Unknown]
